FAERS Safety Report 20227117 (Version 1)
Quarter: 2021Q4

REPORT INFORMATION
  Report Type: Spontaneous
  Country: AU (occurrence: AU)
  Receive Date: 20211224
  Receipt Date: 20211224
  Transmission Date: 20220303
  Serious: Yes (Other)
  Sender: FDA-Public Use
  Company Number: AU-LUPIN PHARMACEUTICALS INC.-2021-25352

PATIENT
  Age: 30 Year
  Sex: Female

DRUGS (9)
  1. CALCIUM [Suspect]
     Active Substance: CALCIUM
     Indication: Hungry bone syndrome
     Dosage: UNK UP TO 17 DAYS
     Route: 042
  2. CALCITRIOL [Suspect]
     Active Substance: CALCITRIOL
     Indication: Hyperparathyroidism
     Dosage: 0.25 MCG ALTERNATING WITH 0.5 MCG, QD
     Route: 065
     Dates: start: 2018
  3. CALCITRIOL [Suspect]
     Active Substance: CALCITRIOL
     Indication: Hungry bone syndrome
     Dosage: 2.25 MICROGRAM, QD PRE-OPERATIVE LOADING
     Route: 065
     Dates: start: 2018
  4. CALCITRIOL [Suspect]
     Active Substance: CALCITRIOL
     Dosage: 8 MICROGRAM, QD
     Route: 065
  5. CALCITRIOL [Suspect]
     Active Substance: CALCITRIOL
     Dosage: 1.5 MICROGRAM, QD THREE MONTHS POSTPARATHYROIDECTOMY
     Route: 065
     Dates: end: 202002
  6. CALCIUM CARBONATE [Suspect]
     Active Substance: CALCIUM CARBONATE
     Indication: Hungry bone syndrome
     Dosage: 9600 MILLIGRAM
     Route: 065
  7. CALCIUM CARBONATE [Suspect]
     Active Substance: CALCIUM CARBONATE
     Dosage: 600 MILLIGRAM
     Route: 065
     Dates: end: 202002
  8. SEVELAMER [Concomitant]
     Active Substance: SEVELAMER
     Indication: Hyperparathyroidism
     Dosage: 2400 MILLIGRAM, TID
     Route: 065
     Dates: end: 201809
  9. RISEDRONATE SODIUM [Concomitant]
     Active Substance: RISEDRONATE SODIUM
     Indication: Hyperparathyroidism
     Dosage: 35 MILLIGRAM
     Route: 065
     Dates: end: 201809

REACTIONS (1)
  - Aortic arteriosclerosis [Not Recovered/Not Resolved]

NARRATIVE: CASE EVENT DATE: 20200301
